FAERS Safety Report 22773057 (Version 4)
Quarter: 2025Q3

REPORT INFORMATION
  Report Type: Report from Study
  Country: GB (occurrence: GB)
  Receive Date: 20230801
  Receipt Date: 20250708
  Transmission Date: 20251021
  Serious: Yes (Other)
  Sender: TAKEDA
  Company Number: GB-TAKEDA-2023TUS045777

PATIENT
  Age: 16 Year
  Sex: Male

DRUGS (3)
  1. VEDOLIZUMAB [Suspect]
     Active Substance: VEDOLIZUMAB
     Indication: Colitis ulcerative
  2. VEDOLIZUMAB [Suspect]
     Active Substance: VEDOLIZUMAB
     Indication: Colitis ulcerative
     Dosage: 108 MILLIGRAM, Q2WEEKS
     Dates: start: 20230503
  3. VEDOLIZUMAB [Suspect]
     Active Substance: VEDOLIZUMAB

REACTIONS (13)
  - Haematochezia [Unknown]
  - Injection site swelling [Unknown]
  - Injection site pain [Unknown]
  - Injection site rash [Unknown]
  - Product use issue [Unknown]
  - Subcutaneous abscess [Unknown]
  - Diarrhoea [Unknown]
  - Skin infection [Unknown]
  - Infection [Not Recovered/Not Resolved]
  - Device leakage [Unknown]
  - Product administration error [Unknown]
  - Incorrect dose administered [Unknown]
  - Drug administered in wrong device [Unknown]

NARRATIVE: CASE EVENT DATE: 20230503
